FAERS Safety Report 20503460 (Version 2)
Quarter: 2022Q3

REPORT INFORMATION
  Report Type: Spontaneous
  Country: US (occurrence: US)
  Receive Date: 20220222
  Receipt Date: 20220708
  Transmission Date: 20221027
  Serious: Yes (Life-Threatening, Hospitalization)
  Sender: FDA-Public Use
  Company Number: US-MYLANLABS-2022M1014291

PATIENT
  Age: 15 Year
  Sex: Female

DRUGS (3)
  1. ACETAMINOPHEN [Suspect]
     Active Substance: ACETAMINOPHEN
     Indication: Product used for unknown indication
     Dosage: UNK
     Route: 048
  2. CELECOXIB [Suspect]
     Active Substance: CELECOXIB
     Indication: Product used for unknown indication
     Dosage: UNK
     Route: 048
  3. CYCLOBENZAPRINE [Suspect]
     Active Substance: CYCLOBENZAPRINE
     Indication: Product used for unknown indication
     Dosage: 11 MILLIGRAM/KILOGRAM
     Route: 048

REACTIONS (5)
  - Coma [Recovered/Resolved]
  - Respiratory acidosis [Recovered/Resolved]
  - Toxicity to various agents [Recovered/Resolved]
  - Intentional overdose [Recovered/Resolved]
  - Intentional product misuse [Unknown]
